FAERS Safety Report 9128805 (Version 3)
Quarter: 2013Q4

REPORT INFORMATION
  Report Type: Spontaneous
  Country: JP (occurrence: JP)
  Receive Date: 20130125
  Receipt Date: 20131101
  Transmission Date: 20140711
  Serious: Yes (Hospitalization, Other)
  Sender: FDA-Public Use
  Company Number: JP-TEVA-382575USA

PATIENT
  Age: 33 Year
  Sex: Female

DRUGS (19)
  1. NOBELZIN [Suspect]
     Indication: HEPATO-LENTICULAR DEGENERATION
     Dosage: 150 MILLIGRAM DAILY;
     Route: 048
     Dates: start: 20080603, end: 20100113
  2. NOBELZIN [Suspect]
     Dosage: 150 MILLIGRAM DAILY;
     Route: 048
     Dates: start: 20100508
  3. NOBELZIN [Suspect]
     Dosage: 150 MILLIGRAM DAILY;
     Route: 048
     Dates: start: 20110603, end: 20120602
  4. CLOSTRIDIUM BUTYRICUM [Concomitant]
     Route: 048
     Dates: start: 20100508
  5. PROGRAF [Concomitant]
     Dosage: 3 MILLIGRAM DAILY;
     Route: 048
     Dates: start: 20110412
  6. POSTERISAN FORTE [Concomitant]
     Indication: ANAL FISTULA
     Route: 054
     Dates: start: 20110601
  7. POSTERISAN FORTE [Concomitant]
     Route: 054
     Dates: start: 20121129, end: 20130205
  8. PREDNISOLONE [Concomitant]
     Indication: HYPERSENSITIVITY
     Dosage: 20 MILLIGRAM DAILY;
     Route: 048
     Dates: start: 20110927, end: 20111129
  9. PREDNISOLONE [Concomitant]
     Dosage: 4 MILLIGRAM DAILY;
     Route: 048
     Dates: start: 20111125, end: 20120229
  10. PREDNISOLONE [Concomitant]
     Dosage: 3 MILLIGRAM DAILY;
     Route: 048
     Dates: start: 20120627
  11. FLORID [Concomitant]
     Dates: start: 20120229
  12. FLORID [Concomitant]
     Dates: start: 20121107
  13. MEDROL [Concomitant]
     Dosage: 24 MILLIGRAM DAILY;
     Route: 048
     Dates: start: 20120530, end: 20120630
  14. MEDROL [Concomitant]
     Dosage: 12 MILLIGRAM DAILY;
     Route: 048
     Dates: start: 20120627, end: 20120807
  15. OZEX [Concomitant]
     Indication: URINARY TRACT INFECTION
     Dosage: 450 MILLIGRAM DAILY;
     Route: 048
     Dates: start: 20120530, end: 20120606
  16. PRANLUKAST [Concomitant]
     Route: 048
     Dates: start: 20121107, end: 20121107
  17. ZESULAN [Concomitant]
     Route: 048
     Dates: start: 20121107, end: 20121121
  18. PROPETO [Concomitant]
     Route: 061
     Dates: start: 20130205
  19. GENOTROPIN [Concomitant]
     Dates: start: 20130206

REACTIONS (4)
  - Colitis ulcerative [Recovering/Resolving]
  - Urinary tract infection [Recovering/Resolving]
  - Growth hormone deficiency [Recovering/Resolving]
  - Drug hypersensitivity [Unknown]
